FAERS Safety Report 9355237 (Version 2)
Quarter: 2013Q3

REPORT INFORMATION
  Report Type: Spontaneous
  Country: US (occurrence: US)
  Receive Date: 20130619
  Receipt Date: 20130813
  Transmission Date: 20140515
  Serious: No
  Sender: FDA-Public Use
  Company Number: US-PFIZER INC-2013181063

PATIENT
  Sex: 0

DRUGS (8)
  1. XELJANZ [Suspect]
     Indication: RHEUMATOID ARTHRITIS
     Dosage: 5 MG, 1X/DAY
     Route: 048
     Dates: start: 20130523, end: 20130619
  2. PREDNISONE [Concomitant]
     Dosage: UNK DOSE AS DIRECTED
  3. AMLODIPINE [Concomitant]
     Dosage: UNK DOSE AS DIRECTED
  4. CLONAZEPAM [Concomitant]
     Dosage: UNK DOSE AS DIRECTED
  5. LASIX [Concomitant]
     Dosage: UNK DOSE AS DIRECTED
  6. LIDODERM [Concomitant]
     Dosage: UNK DOSE AS DIRECTED
  7. LYRICA [Concomitant]
     Dosage: UNK, DOSE AS DIRECTED
  8. OXYCODONE [Concomitant]
     Dosage: UNK, DOSE AS DIRECTED

REACTIONS (3)
  - Abdominal pain upper [Unknown]
  - Constipation [Recovering/Resolving]
  - Abdominal discomfort [Unknown]
